FAERS Safety Report 5367503-7 (Version None)
Quarter: 2007Q2

REPORT INFORMATION
  Report Type: 
  Country: None (occurrence: None)
  Receive Date: 20070622
  Receipt Date: 20061109
  Transmission Date: 20071010
  Serious: No
  Sender: FDA-Public Use
  Company Number: US-ASTRAZENECA-2006UW19940

PATIENT
  Age: 46 Month
  Sex: Female
  Weight: 14.9 kg

DRUGS (2)
  1. PULMICORT RESPULES [Suspect]
     Indication: ASTHMA
     Route: 055
     Dates: end: 20061001
  2. ZYRTEC [Concomitant]
     Indication: MULTIPLE ALLERGIES

REACTIONS (4)
  - ANGER [None]
  - INSOMNIA [None]
  - NIGHTMARE [None]
  - PSYCHOMOTOR HYPERACTIVITY [None]
